FAERS Safety Report 21588046 (Version 2)
Quarter: 2022Q4

REPORT INFORMATION
  Report Type: Spontaneous
  Country: US (occurrence: US)
  Receive Date: 20221114
  Receipt Date: 20221121
  Transmission Date: 20230113
  Serious: Yes (Other)
  Sender: FDA-Public Use
  Company Number: US-MLMSERVICE-20221031-3884932-1

PATIENT
  Age: 26 Year
  Sex: Female

DRUGS (5)
  1. CLINDAMYCIN PHOSPHATE [Suspect]
     Active Substance: CLINDAMYCIN PHOSPHATE
     Indication: Folliculitis
     Dosage: UNK
     Route: 061
  2. ALCLOMETASONE [Suspect]
     Active Substance: ALCLOMETASONE
     Indication: Dermatitis contact
     Dosage: UNK
  3. MOMETASONE [Suspect]
     Active Substance: MOMETASONE
     Indication: Folliculitis
     Dosage: UNK
     Route: 061
  4. CLOBETASOL [Suspect]
     Active Substance: CLOBETASOL
     Indication: Dermatitis contact
     Dosage: UNK
  5. CLOBETASOL [Suspect]
     Active Substance: CLOBETASOL
     Indication: Rash

REACTIONS (4)
  - Prescription drug used without a prescription [Unknown]
  - Klebsiella infection [Recovering/Resolving]
  - Superinfection bacterial [Recovering/Resolving]
  - Tinea infection [Recovering/Resolving]
